FAERS Safety Report 23135407 (Version 2)
Quarter: 2023Q4

REPORT INFORMATION
  Report Type: Spontaneous
  Country: US (occurrence: US)
  Receive Date: 20231101
  Receipt Date: 20231129
  Transmission Date: 20240109
  Serious: Yes (Other)
  Sender: FDA-Public Use
  Company Number: US-PFIZER INC-202300349776

PATIENT
  Age: 64 Year
  Sex: Female
  Weight: 99.773 kg

DRUGS (2)
  1. XELJANZ [Suspect]
     Active Substance: TOFACITINIB CITRATE
     Indication: Rheumatoid arthritis
     Dosage: 10 MG ONCE DAILY VIA TAKING TOFACITINIB 5 MG TABLET  (04DEC2019)
  2. XELJANZ [Suspect]
     Active Substance: TOFACITINIB CITRATE
     Dosage: 5 MG TWICE DAILY

REACTIONS (6)
  - Knee arthroplasty [Unknown]
  - Neuropathy peripheral [Unknown]
  - Joint dislocation [Unknown]
  - Breakthrough pain [Unknown]
  - Sensory loss [Unknown]
  - Off label use [Unknown]
